FAERS Safety Report 21463157 (Version 1)
Quarter: 2022Q4

REPORT INFORMATION
  Report Type: Report from Study
  Country: US (occurrence: US)
  Receive Date: 20221017
  Receipt Date: 20221017
  Transmission Date: 20230112
  Serious: No
  Sender: FDA-Public Use
  Company Number: US-ABBVIE-4145438

PATIENT
  Sex: Female

DRUGS (14)
  1. HUMIRA [Suspect]
     Active Substance: ADALIMUMAB
     Indication: Back pain
     Route: 058
     Dates: start: 20220714
  2. HUMIRA [Suspect]
     Active Substance: ADALIMUMAB
     Route: 058
  3. CLARITIN TAB [Concomitant]
     Indication: Product used for unknown indication
  4. PEPCID TAB [Concomitant]
     Indication: Product used for unknown indication
  5. METHOTREXATE SOL [Concomitant]
     Indication: Product used for unknown indication
     Dosage: 50MG/2ML
  6. FOLIC ACID TAB [Concomitant]
     Indication: Product used for unknown indication
  7. METHYLPREDNI TAB [Concomitant]
     Indication: Product used for unknown indication
  8. CYCIORENZPRINE HCL [Concomitant]
     Indication: Product used for unknown indication
  9. LORAZEPAM TAB [Concomitant]
     Indication: Product used for unknown indication
  10. CALCIUM CITR TAB [Concomitant]
     Indication: Product used for unknown indication
     Dosage: 315-200M
  11. VITAMIN D3 U CAP [Concomitant]
     Indication: Product used for unknown indication
  12. TYLENOL 8 HO TBC [Concomitant]
     Indication: Product used for unknown indication
  13. ASPIRIN TAB 325MG [Concomitant]
     Indication: Product used for unknown indication
  14. LEUCOVORIN C TAB [Concomitant]
     Indication: Product used for unknown indication

REACTIONS (1)
  - Therapeutic product effect decreased [Recovered/Resolved]

NARRATIVE: CASE EVENT DATE: 20220101
